FAERS Safety Report 8462682-7 (Version None)
Quarter: 2012Q2

REPORT INFORMATION
  Report Type: 
  Country: None (occurrence: None)
  Receive Date: 20120625
  Receipt Date: 20120621
  Transmission Date: 20120825
  Serious: Yes (Hospitalization)
  Sender: FDA-Public Use
  Company Number: FR-ROCHE-1080960

PATIENT
  Sex: Female

DRUGS (1)
  1. XELODA [Suspect]
     Indication: PRODUCT USED FOR UNKNOWN INDICATION
     Route: 048

REACTIONS (4)
  - GRAND MAL CONVULSION [None]
  - CEREBRAL ISCHAEMIA [None]
  - COGNITIVE DISORDER [None]
  - MEMORY IMPAIRMENT [None]
